FAERS Safety Report 8228908 (Version 2)
Quarter: 2012Q4

REPORT INFORMATION
  Report Type: 
  Country: US (occurrence: US)
  Receive Date: 20111104
  Receipt Date: 20121113
  Transmission Date: 20130627
  Serious: Yes (Congenital Anomaly, Other)
  Sender: FDA-Public Use
  Company Number: US-PFIZER INC-2011268670

PATIENT
  Sex: Female
  Weight: 13 kg

DRUGS (2)
  1. ZOLOFT [Suspect]
     Indication: NERVOUS SYSTEM DISORDER
     Dosage: 150 mg, daily
     Route: 064
     Dates: start: 200904
  2. ZOLOFT [Suspect]
     Indication: DEPRESSION
     Dosage: 100 mg, 2x/day
     Route: 064
     Dates: start: 200907, end: 20091116

REACTIONS (8)
  - Maternal exposure timing unspecified [Not Recovered/Not Resolved]
  - Cardiac septal defect [Not Recovered/Not Resolved]
  - Cardiac valve disease [Not Recovered/Not Resolved]
  - Brain oedema [Not Recovered/Not Resolved]
  - Premature delivery [Unknown]
  - Cardiac murmur [Not Recovered/Not Resolved]
  - Dyskinesia [Not Recovered/Not Resolved]
  - Balance disorder [Not Recovered/Not Resolved]
